FAERS Safety Report 13921919 (Version 3)
Quarter: 2017Q3

REPORT INFORMATION
  Report Type: Report from Study
  Country: None (occurrence: IL)
  Receive Date: 20170830
  Receipt Date: 20170922
  Transmission Date: 20171127
  Serious: Yes (Hospitalization, Other)
  Sender: FDA-Public Use
  Company Number: IL-ABBVIE-17K-082-2082042-00

PATIENT
  Sex: Female
  Weight: 37 kg

DRUGS (3)
  1. HUMIRA [Suspect]
     Active Substance: ADALIMUMAB
     Route: 058
     Dates: start: 2016
  2. REMICADE [Suspect]
     Active Substance: INFLIXIMAB
     Indication: CROHN^S DISEASE
     Route: 065
  3. HUMIRA [Suspect]
     Active Substance: ADALIMUMAB
     Indication: CROHN^S DISEASE
     Route: 058
     Dates: start: 20140522

REACTIONS (7)
  - Swelling [Unknown]
  - Generalised erythema [Unknown]
  - Crohn^s disease [Recovering/Resolving]
  - Pruritus generalised [Unknown]
  - Surgical failure [Unknown]
  - Drug specific antibody present [Unknown]
  - Drug level decreased [Unknown]

NARRATIVE: CASE EVENT DATE: 2014
